FAERS Safety Report 14475982 (Version 2)
Quarter: 2018Q1

REPORT INFORMATION
  Report Type: Spontaneous
  Country: US (occurrence: US)
  Receive Date: 20180201
  Receipt Date: 20180215
  Transmission Date: 20180509
  Serious: Yes (Other)
  Sender: FDA-Public Use
  Company Number: US-TEVA-2018-US-853839

PATIENT
  Age: 6 Decade
  Sex: Male

DRUGS (3)
  1. 5-FLUOROURACIL [Suspect]
     Active Substance: FLUOROURACIL
     Indication: OESOPHAGEAL CARCINOMA
     Route: 065
  2. FOLINIC ACID [Suspect]
     Active Substance: LEUCOVORIN
     Indication: OESOPHAGEAL CARCINOMA
     Route: 065
  3. IRINOTECAN [Suspect]
     Active Substance: IRINOTECAN
     Indication: OESOPHAGEAL CARCINOMA
     Route: 065

REACTIONS (3)
  - Palmar-plantar erythrodysaesthesia syndrome [Recovering/Resolving]
  - Balanoposthitis [Recovered/Resolved]
  - Toxic erythema of chemotherapy [Recovering/Resolving]
